FAERS Safety Report 4623824-4 (Version None)
Quarter: 2005Q1

REPORT INFORMATION
  Report Type: 
  Country: None (occurrence: None)
  Receive Date: 20050329
  Receipt Date: 20050329
  Transmission Date: 20050727
  Serious: Yes (Death)
  Sender: FDA-Public Use
  Company Number: None

PATIENT
  Age: 66 Year
  Sex: Female

DRUGS (5)
  1. NEURONTIN [Suspect]
     Indication: PAIN
     Dosage: 1800MG, DAILY, ORAL
     Route: 048
     Dates: start: 19990707, end: 20040208
  2. DURAGESIC-100 [Concomitant]
  3. MIRTAZAPINE [Concomitant]
  4. APRAZOLA [Concomitant]
  5. KLOR-CON [Concomitant]

REACTIONS (2)
  - COMPLETED SUICIDE [None]
  - GUN SHOT WOUND [None]
